FAERS Safety Report 6274147-1 (Version None)
Quarter: 2009Q3

REPORT INFORMATION
  Report Type: 
  Country: None (occurrence: None)
  Receive Date: 20090720
  Receipt Date: 20090716
  Transmission Date: 20100115
  Serious: Yes (Life-Threatening, Other)
  Sender: FDA-Public Use
  Company Number: PHEH2009US07661

PATIENT
  Sex: Female

DRUGS (1)
  1. GENTEAL DROPS (NVO) [Suspect]
     Indication: DRY EYE
     Dosage: UNK
     Dates: start: 20090713

REACTIONS (2)
  - CONFUSIONAL STATE [None]
  - SUICIDAL IDEATION [None]
